FAERS Safety Report 5488794-8 (Version None)
Quarter: 2007Q4

REPORT INFORMATION
  Report Type: 
  Country: None (occurrence: None)
  Receive Date: 20071017
  Receipt Date: 20071005
  Transmission Date: 20080405
  Serious: Yes (Other)
  Sender: FDA-Public Use
  Company Number: JP-PFIZER INC-2007084861

PATIENT
  Age: 75 Year

DRUGS (2)
  1. ZOLOFT [Suspect]
     Route: 048
  2. ALL OTHER THERAPEUTIC PRODUCTS [Concomitant]

REACTIONS (1)
  - LOSS OF CONSCIOUSNESS [None]
